FAERS Safety Report 14483360 (Version 3)
Quarter: 2018Q2

REPORT INFORMATION
  Report Type: Report from Study
  Country: DE (occurrence: DE)
  Receive Date: 20180204
  Receipt Date: 20180611
  Transmission Date: 20180711
  Serious: Yes (Hospitalization)
  Sender: FDA-Public Use
  Company Number: DE-BIOGEN-2018BI00518688

PATIENT
  Age: 58 Year
  Sex: Female
  Weight: 55 kg

DRUGS (9)
  1. CLEXANE [Concomitant]
     Active Substance: ENOXAPARIN SODIUM
     Dosage: 0.4
     Route: 058
     Dates: end: 20120330
  2. DELIX [Concomitant]
     Active Substance: RAMIPRIL
     Indication: PRODUCT USED FOR UNKNOWN INDICATION
     Dosage: 5
     Route: 065
  3. AVONEX [Suspect]
     Active Substance: INTERFERON BETA-1A
     Route: 030
  4. AVONEX [Suspect]
     Active Substance: INTERFERON BETA-1A
     Route: 065
  5. PREDNISOLONE. [Concomitant]
     Active Substance: PREDNISOLONE
     Indication: RELAPSING-REMITTING MULTIPLE SCLEROSIS
     Route: 065
  6. PANTOZOL [Concomitant]
     Active Substance: PANTOPRAZOLE SODIUM
     Indication: PRODUCT USED FOR UNKNOWN INDICATION
     Route: 065
  7. ACETAMINOPHEN. [Concomitant]
     Active Substance: ACETAMINOPHEN
     Indication: SCIATICA
     Dosage: TWO TIMES EACH MONDAY AFTER AVX INJECTION
     Route: 065
  8. AVONEX [Suspect]
     Active Substance: INTERFERON BETA-1A
     Indication: MULTIPLE SCLEROSIS
     Route: 030
     Dates: start: 200001
  9. CLEXANE [Concomitant]
     Active Substance: ENOXAPARIN SODIUM
     Indication: PRODUCT USED FOR UNKNOWN INDICATION
     Route: 058

REACTIONS (16)
  - Douglas^ abscess [Unknown]
  - Back pain [Unknown]
  - Peripheral swelling [Unknown]
  - Multiple sclerosis relapse [Recovered/Resolved]
  - Peritonitis [Unknown]
  - Neuroborreliosis [Unknown]
  - Sciatica [Unknown]
  - Enterocele [Recovered/Resolved]
  - Hyperaesthesia [Unknown]
  - Invasive breast carcinoma [Recovered/Resolved]
  - Erysipelas [Recovered/Resolved]
  - Radiation skin injury [Unknown]
  - Fatigue [Unknown]
  - Large intestine perforation [Unknown]
  - Cutaneous symptom [Unknown]
  - Ileus [Unknown]

NARRATIVE: CASE EVENT DATE: 2012
